FAERS Safety Report 24795966 (Version 1)
Quarter: 2025Q1

REPORT INFORMATION
  Report Type: Report from Study
  Country: US (occurrence: US)
  Receive Date: 20250101
  Receipt Date: 20250101
  Transmission Date: 20250408
  Serious: No
  Sender: ACADIA PHARMACEUTICALS
  Company Number: US-ACADIA PHARMACEUTICALS INC.-ACA-2024-PIM-007105

PATIENT
  Sex: Female

DRUGS (35)
  1. NUPLAZID [Suspect]
     Active Substance: PIMAVANSERIN TARTRATE
     Indication: Parkinson^s disease psychosis
     Dosage: 34 MILLIGRAM, QD
     Route: 048
     Dates: end: 202203
  2. NUPLAZID [Suspect]
     Active Substance: PIMAVANSERIN TARTRATE
     Indication: Parkinson^s disease
     Dosage: 34 MILLIGRAM, QD
     Route: 048
     Dates: start: 20241029
  3. NUPLAZID [Suspect]
     Active Substance: PIMAVANSERIN TARTRATE
     Dosage: 34 MILLIGRAM, QD
     Route: 048
     Dates: start: 20241107
  4. ACETAMINOPHEN [Concomitant]
     Active Substance: ACETAMINOPHEN
  5. ACIPHEX [Concomitant]
     Active Substance: RABEPRAZOLE SODIUM
  6. ARIPIPRAZOLE [Concomitant]
     Active Substance: ARIPIPRAZOLE
  7. BENZONATATE [Concomitant]
     Active Substance: BENZONATATE
  8. BUSPIRONE HCL [Concomitant]
     Active Substance: BUSPIRONE HYDROCHLORIDE
  9. CALCIUM [Concomitant]
     Active Substance: CALCIUM
  10. COLACE [Concomitant]
     Active Substance: DOCUSATE SODIUM
  11. ELIQUIS [Concomitant]
     Active Substance: APIXABAN
  12. ENTACAPONE [Concomitant]
     Active Substance: ENTACAPONE
  13. FAMOTIDINE [Concomitant]
     Active Substance: FAMOTIDINE
  14. FIBER THERAPY (CALCIUM POLYCARBOPHIL) [Concomitant]
     Active Substance: CALCIUM POLYCARBOPHIL
  15. FOLVITE D [Concomitant]
  16. HYDROCODONE BITARTRATE AND ACETAMINOPHEN [Concomitant]
     Active Substance: ACETAMINOPHEN\HYDROCODONE BITARTRATE
  17. LASIX [Concomitant]
     Active Substance: FUROSEMIDE
  18. LEVOTHYROXINE SODIUM [Concomitant]
     Active Substance: LEVOTHYROXINE SODIUM
  19. LIDODERM [Concomitant]
     Active Substance: LIDOCAINE
  20. MELATONIN [Concomitant]
     Active Substance: MELATONIN
  21. METOPROLOL TARTRATE [Concomitant]
     Active Substance: METOPROLOL TARTRATE
  22. VITAMINS NOS [Concomitant]
     Active Substance: VITAMINS
  23. MINERALS\VITAMINS [Concomitant]
     Active Substance: MINERALS\VITAMINS
  24. PROLIA [Concomitant]
     Active Substance: DENOSUMAB
  25. PROMETHAZINE [Concomitant]
     Active Substance: PROMETHAZINE HYDROCHLORIDE
  26. ROSUVASTATIN [Concomitant]
     Active Substance: ROSUVASTATIN
  27. RYALTRIS [Concomitant]
     Active Substance: MOMETASONE FUROATE MONOHYDRATE\OLOPATADINE HYDROCHLORIDE
  28. TRIAMCINOLONE [Concomitant]
     Active Substance: TRIAMCINOLONE
  29. VITAMIN D3 [Concomitant]
     Active Substance: CHOLECALCIFEROL
  30. XANAX [Concomitant]
     Active Substance: ALPRAZOLAM
  31. ZETIA [Concomitant]
     Active Substance: EZETIMIBE
  32. ZOLOFT [Concomitant]
     Active Substance: SERTRALINE HYDROCHLORIDE
  33. ZYRTEC [Concomitant]
     Active Substance: CETIRIZINE HYDROCHLORIDE
  34. METOPROLOL SUCCINATE [Concomitant]
     Active Substance: METOPROLOL SUCCINATE
  35. RABEPRAZOLE [Concomitant]
     Active Substance: RABEPRAZOLE

REACTIONS (1)
  - Drug ineffective [Unknown]
